FAERS Safety Report 23774835 (Version 3)
Quarter: 2024Q2

REPORT INFORMATION
  Report Type: Spontaneous
  Country: US (occurrence: US)
  Receive Date: 20240423
  Receipt Date: 20240508
  Transmission Date: 20240716
  Serious: Yes (Hospitalization)
  Sender: FDA-Public Use
  Company Number: US-SA-SAC20240419000285

PATIENT
  Sex: Female

DRUGS (15)
  1. OLIPUDASE ALFA-RPCP [Suspect]
     Active Substance: OLIPUDASE ALFA-RPCP
     Dosage: 0.1 MG/KG
     Route: 042
     Dates: start: 20231127, end: 20231127
  2. OLIPUDASE ALFA-RPCP [Suspect]
     Active Substance: OLIPUDASE ALFA-RPCP
     Dosage: 0.3 MG/KG
     Route: 042
     Dates: start: 20231211, end: 20231211
  3. OLIPUDASE ALFA-RPCP [Suspect]
     Active Substance: OLIPUDASE ALFA-RPCP
     Dosage: 0.3 MG/KG
     Route: 042
     Dates: start: 20240108, end: 20240108
  4. OLIPUDASE ALFA-RPCP [Suspect]
     Active Substance: OLIPUDASE ALFA-RPCP
     Dosage: 0.3 MG/KG
     Route: 042
     Dates: start: 20240122, end: 20240122
  5. OLIPUDASE ALFA-RPCP [Suspect]
     Active Substance: OLIPUDASE ALFA-RPCP
     Dosage: 0.6 MG/KG
     Route: 042
     Dates: start: 20230205, end: 20230205
  6. OLIPUDASE ALFA-RPCP [Suspect]
     Active Substance: OLIPUDASE ALFA-RPCP
     Dosage: 0.6 MG/KG
     Route: 042
     Dates: start: 20230219, end: 20230219
  7. OLIPUDASE ALFA-RPCP [Suspect]
     Active Substance: OLIPUDASE ALFA-RPCP
     Dosage: 0.6 MG/KG
     Route: 042
     Dates: start: 20240304, end: 20240304
  8. OLIPUDASE ALFA-RPCP [Suspect]
     Active Substance: OLIPUDASE ALFA-RPCP
     Dosage: 0.8 MG/KG
     Route: 065
     Dates: start: 20240315, end: 20240315
  9. OLIPUDASE ALFA-RPCP [Suspect]
     Active Substance: OLIPUDASE ALFA-RPCP
     Dosage: 1 MG/KG
     Route: 065
     Dates: start: 20240401, end: 20240401
  10. OLIPUDASE ALFA-RPCP [Suspect]
     Active Substance: OLIPUDASE ALFA-RPCP
     Dosage: 0.8 MG/KG
     Route: 065
     Dates: start: 20240415, end: 20240415
  11. SINGULAIR [Concomitant]
     Active Substance: MONTELUKAST SODIUM
     Indication: Premedication
     Dosage: STARTED PRE-MEDICATION THE NIGHT BEFORE AND NIGHT AFTER THE INFUSION
  12. BENADRYL [Concomitant]
     Active Substance: DIPHENHYDRAMINE HYDROCHLORIDE
     Indication: Premedication
     Dosage: 30 MINUTES PRIOR TO INFUSION
  13. MOTRIN [Concomitant]
     Active Substance: IBUPROFEN
     Indication: Premedication
     Dosage: 30 MINUTES PRIOR TO INFUSION
  14. ZYRTEC [Concomitant]
     Active Substance: CETIRIZINE HYDROCHLORIDE
     Indication: Premedication
     Dosage: STARTED PRE-MEDICATION THE NIGHT BEFORE AND NIGHT AFTER THE INFUSION
  15. PEPCID [Concomitant]
     Active Substance: FAMOTIDINE
     Dosage: UNK

REACTIONS (4)
  - Alanine aminotransferase increased [Recovered/Resolved]
  - Aspartate aminotransferase increased [Recovered/Resolved]
  - Sneezing [Recovered/Resolved]
  - Rhinorrhoea [Recovered/Resolved]

NARRATIVE: CASE EVENT DATE: 20240108
